FAERS Safety Report 5714255-4 (Version None)
Quarter: 2008Q2

REPORT INFORMATION
  Report Type: 
  Country: None (occurrence: None)
  Receive Date: 20080422
  Receipt Date: 20080422
  Transmission Date: 20081010
  Serious: Yes (Hospitalization)
  Sender: FDA-Public Use
  Company Number: None

PATIENT
  Age: 78 Year
  Sex: Male
  Weight: 103.42 kg

DRUGS (3)
  1. WARFARIN SODIUM [Suspect]
     Indication: ATRIAL FIBRILLATION
     Dosage: 12 MG QWEEK PO
     Route: 048
     Dates: start: 20020101
  2. WARFARIN SODIUM [Suspect]
     Indication: ATRIAL FLUTTER
     Dosage: 12 MG QWEEK PO
     Route: 048
     Dates: start: 20020101
  3. WARFARIN SODIUM [Suspect]
     Indication: HEART VALVE OPERATION
     Dosage: 12 MG QWEEK PO
     Route: 048
     Dates: start: 20020101

REACTIONS (4)
  - DIVERTICULITIS INTESTINAL HAEMORRHAGIC [None]
  - GASTRIC HAEMORRHAGE [None]
  - HYPOTENSION [None]
  - RECTAL HAEMORRHAGE [None]
